FAERS Safety Report 7778968-5 (Version None)
Quarter: 2011Q3

REPORT INFORMATION
  Report Type: 
  Country: None (occurrence: None)
  Receive Date: 20110926
  Receipt Date: 20110915
  Transmission Date: 20111222
  Serious: Yes (Other)
  Sender: FDA-Public Use
  Company Number: US-ELI_LILLY_AND_COMPANY-US201109004754

PATIENT
  Age: 69 Year
  Sex: Female

DRUGS (20)
  1. CELEXA [Concomitant]
     Dosage: 40 MG, QD
  2. GABAPENTIN [Concomitant]
     Dosage: 600 MG, AT BEDTIME
  3. EFFIENT [Suspect]
     Indication: PERCUTANEOUS CORONARY INTERVENTION
     Dosage: 10 MG, QD
     Dates: start: 20110902
  4. CIPROFLOXACIN [Concomitant]
     Dosage: 250 MG, EVERY 12 HOURS
  5. GABAPENTIN [Concomitant]
     Dosage: 800 MG, TID
  6. SPIRIVA [Concomitant]
     Dosage: 18 MCG, QD
     Route: 055
  7. METFORMIN HCL [Concomitant]
     Dosage: 500 MG, BID
  8. ABILIFY [Concomitant]
     Dosage: 5 MG, UNK
  9. FISH OIL [Concomitant]
     Dosage: 1000 MG, QD
  10. IMDUR [Concomitant]
     Dosage: 60 MG, QD
  11. METOPROLOL TARTRATE [Concomitant]
     Dosage: 6.25 MG, BID
  12. PREDNISONE [Concomitant]
     Dosage: 40 MG, QD
  13. SULFASALAZINE [Concomitant]
     Dosage: 500 MG, BID
  14. ASPIRIN [Concomitant]
     Dosage: 325 MG, QD
  15. ALBUTEROL [Concomitant]
     Dosage: 2.4 DF, EVERY 6 HRS
  16. ADVAIR DISKUS 100/50 [Concomitant]
     Dosage: 1 PUFF, BID
  17. GLIPIZIDE [Concomitant]
     Dosage: 10 MG, BID
  18. MAGNESIUM OXIDE [Concomitant]
     Dosage: 400 MG, QD
  19. NITRO                              /00003201/ [Concomitant]
     Indication: CHEST PAIN
     Dosage: UNK, PRN
  20. OMEPRAZOLE [Concomitant]
     Dosage: 20 MG, QD

REACTIONS (2)
  - THROMBOSIS IN DEVICE [None]
  - NO THERAPEUTIC RESPONSE [None]
